FAERS Safety Report 16070172 (Version 1)
Quarter: 2019Q1

REPORT INFORMATION
  Report Type: Spontaneous
  Country: IT (occurrence: IT)
  Receive Date: 20190314
  Receipt Date: 20190314
  Transmission Date: 20190418
  Serious: Yes (Disabling)
  Sender: FDA-Public Use
  Company Number: IT-ACCORD-112389

PATIENT
  Age: 50 Year
  Sex: Female

DRUGS (10)
  1. DECAPEPTYL [Concomitant]
     Active Substance: TRIPTORELIN
     Indication: BREAST CANCER METASTATIC
     Route: 058
     Dates: start: 20130325, end: 20180925
  2. CAPECITABINE. [Concomitant]
     Active Substance: CAPECITABINE
     Indication: BREAST CANCER METASTATIC
     Route: 048
     Dates: start: 20170101, end: 20170831
  3. IBANDRONATE SODIUM. [Suspect]
     Active Substance: IBANDRONATE SODIUM
     Indication: BREAST CANCER METASTATIC
     Dates: start: 20131201, end: 20131201
  4. AVASTIN [Suspect]
     Active Substance: BEVACIZUMAB
     Indication: BREAST CANCER METASTATIC
     Dosage: STRENGTH 25 MG/ML
     Route: 042
     Dates: start: 20170928, end: 20180920
  5. XGEVA [Suspect]
     Active Substance: DENOSUMAB
     Indication: BREAST CANCER METASTATIC
     Dosage: STRENGTH 120 MG
     Route: 058
     Dates: start: 20131201, end: 20180701
  6. TAXOL [Concomitant]
     Active Substance: PACLITAXEL
     Indication: BREAST CANCER METASTATIC
     Route: 042
     Dates: start: 20170928, end: 20180314
  7. FULVESTRANT. [Concomitant]
     Active Substance: FULVESTRANT
     Indication: BREAST CANCER METASTATIC
     Dates: start: 20160901, end: 20170131
  8. EXEMESTANE ACCORD HEALTHCARE [Concomitant]
     Indication: BREAST CANCER METASTATIC
     Dosage: STRENGTH 25 MG
     Route: 048
     Dates: start: 20170928, end: 20180925
  9. TAMOXIFEN [Concomitant]
     Active Substance: TAMOXIFEN
     Indication: BREAST CANCER
     Route: 048
     Dates: start: 20130325, end: 20131223
  10. LETROZOLE. [Concomitant]
     Active Substance: LETROZOLE
     Indication: BREAST CANCER METASTATIC
     Route: 048
     Dates: start: 20131201, end: 20160801

REACTIONS (2)
  - Sinusitis [Not Recovered/Not Resolved]
  - Osteonecrosis of jaw [Not Recovered/Not Resolved]

NARRATIVE: CASE EVENT DATE: 20180601
